FAERS Safety Report 24361589 (Version 1)
Quarter: 2024Q3

REPORT INFORMATION
  Report Type: Other
  Country: US (occurrence: US)
  Receive Date: 20240925
  Receipt Date: 20240925
  Transmission Date: 20241017
  Serious: Yes (Death, Other)
  Sender: APPCO PHARMA
  Company Number: US-Appco Pharma LLC-2162024

PATIENT
  Age: 69 Year

DRUGS (4)
  1. VENLAFAXINE [Suspect]
     Active Substance: VENLAFAXINE HYDROCHLORIDE
     Indication: Bipolar disorder
  2. DONEPEZIL [Suspect]
     Active Substance: DONEPEZIL\DONEPEZIL HYDROCHLORIDE
  3. DESVENLAFAXINE [Suspect]
     Active Substance: DESVENLAFAXINE
  4. QUETIAPINE [Suspect]
     Active Substance: QUETIAPINE

REACTIONS (2)
  - Intentional overdose [Fatal]
  - Completed suicide [Fatal]
